FAERS Safety Report 7655056-X (Version None)
Quarter: 2011Q3

REPORT INFORMATION
  Report Type: 
  Country: None (occurrence: None)
  Receive Date: 20110801
  Receipt Date: 20110714
  Transmission Date: 20111222
  Serious: Yes (Other)
  Sender: FDA-Public Use
  Company Number: 2011MA008894

PATIENT
  Age: 50 Year
  Sex: Female

DRUGS (7)
  1. FLECAINIDE ACETATE [Suspect]
  2. SERTRALINE HYDROCHLORIDE [Suspect]
  3. CALCIUM CARBONATE [Suspect]
  4. WARFARIN SODIUM [Suspect]
  5. POTASSIUM CHLORIDE [Suspect]
  6. OESTRIOL (NO PREF. NAME) [Suspect]
  7. FUROSEMIDE [Suspect]

REACTIONS (2)
  - HAEMORRHAGE [None]
  - DEEP VEIN THROMBOSIS [None]
